FAERS Safety Report 8186544-8 (Version None)
Quarter: 2012Q1

REPORT INFORMATION
  Report Type: 
  Country: None (occurrence: None)
  Receive Date: 20120306
  Receipt Date: 20120229
  Transmission Date: 20120608
  Serious: Yes (Hospitalization, Disabling)
  Sender: FDA-Public Use
  Company Number: US-B.I. PHARMACEUTICALS,INC./RIDGEFIELD-2012-BP-02476BP

PATIENT
  Age: 58 Year
  Sex: Female

DRUGS (5)
  1. SOTALOL HCL [Concomitant]
     Indication: ATRIAL FIBRILLATION
     Dosage: 240 MG
     Dates: start: 20111222
  2. BUMEX [Concomitant]
     Indication: ATRIAL FIBRILLATION
  3. DIGOXIN [Concomitant]
     Indication: ATRIAL FIBRILLATION
     Dates: start: 20111222, end: 20120202
  4. PRADAXA [Suspect]
     Indication: ATRIAL FIBRILLATION
     Dosage: 300 MG
     Route: 048
     Dates: start: 20111222, end: 20120202
  5. TRIBENZOR [Concomitant]
     Indication: HYPERTENSION
     Dates: start: 20111101, end: 20120202

REACTIONS (1)
  - CEREBROVASCULAR ACCIDENT [None]
